FAERS Safety Report 23192550 (Version 4)
Quarter: 2023Q4

REPORT INFORMATION
  Report Type: Report from Study
  Country: ES (occurrence: ES)
  Receive Date: 20231116
  Receipt Date: 20231124
  Transmission Date: 20240109
  Serious: Yes (Other)
  Sender: FDA-Public Use
  Company Number: ES-ABBVIE-5493630

PATIENT
  Sex: Male

DRUGS (5)
  1. CARBIDOPA\LEVODOPA [Suspect]
     Active Substance: CARBIDOPA\LEVODOPA
     Indication: Parkinson^s disease
     Route: 050
     Dates: start: 20181120, end: 202311
  2. CARBIDOPA\LEVODOPA [Suspect]
     Active Substance: CARBIDOPA\LEVODOPA
     Dosage: CONTINUOUS DOSE OF 4.2 ML/H
     Route: 050
     Dates: start: 202311, end: 20231117
  3. CARBIDOPA\LEVODOPA [Suspect]
     Active Substance: CARBIDOPA\LEVODOPA
     Dosage: MORNING DOSE 8 ML, CONTINUOUS DOSE 3.6 ML/H, EXTRA DOSE 1 ML.
     Route: 050
     Dates: start: 20231117
  4. CARBIDOPA\LEVODOPA [Suspect]
     Active Substance: CARBIDOPA\LEVODOPA
     Dosage: CONTINUOUS DOSE OF 4.2 ML/H
     Route: 050
     Dates: start: 202311, end: 202311
  5. RIVOTRIL [Concomitant]
     Active Substance: CLONAZEPAM
     Indication: Product used for unknown indication
     Dosage: 3 DROPS
     Dates: start: 2023

REACTIONS (11)
  - Catatonia [Unknown]
  - Feeling of despair [Unknown]
  - Hyporesponsive to stimuli [Not Recovered/Not Resolved]
  - On and off phenomenon [Unknown]
  - Device dislocation [Recovered/Resolved]
  - Aggression [Unknown]
  - Dyskinesia [Not Recovered/Not Resolved]
  - Agitation [Unknown]
  - Orthostatic hypotension [Unknown]
  - Unresponsive to stimuli [Not Recovered/Not Resolved]
  - Disorientation [Unknown]

NARRATIVE: CASE EVENT DATE: 20230101
